FAERS Safety Report 8334085 (Version 2)
Quarter: 2013Q2

REPORT INFORMATION
  Report Type: Spontaneous
  Country: US (occurrence: None)
  Receive Date: 20111130
  Receipt Date: 20120531
  Transmission Date: 20140414
  Serious: Yes (Disabling, Other)
  Sender: FDA-Public Use
  Company Number: US201106004340

PATIENT
  Sex: Female

DRUGS (4)
  1. BYETTA [Suspect]
     Dates: start: 2006, end: 2009
  2. METFORMIN (METFORMIN) [Concomitant]
  3. LIPITOR (ATORVASTATIN CALCIUM) [Concomitant]
  4. METOPROLOL (METOPROLOL) [Concomitant]

REACTIONS (3)
  - Pancreatitis acute [None]
  - RENAL DISORDER [None]
  - Calculus ureteric [None]
